FAERS Safety Report 25605603 (Version 1)
Quarter: 2025Q3

REPORT INFORMATION
  Report Type: Spontaneous
  Country: US (occurrence: US)
  Receive Date: 20250725
  Receipt Date: 20250725
  Transmission Date: 20251021
  Serious: Yes (Hospitalization)
  Sender: SANOFI AVENTIS
  Company Number: US-SA-2025SA211453

PATIENT
  Age: 57 Year
  Sex: Male
  Weight: 68.18 kg

DRUGS (3)
  1. DUPIXENT [Suspect]
     Active Substance: DUPILUMAB
     Indication: Eczema
     Route: 058
     Dates: start: 2025, end: 2025
  2. SILVER SULFADIAZINE [Concomitant]
     Active Substance: SILVER SULFADIAZINE
  3. TACROLIMUS [Concomitant]
     Active Substance: TACROLIMUS

REACTIONS (3)
  - Hospitalisation [Unknown]
  - Scabies [Unknown]
  - Thermal burn [Unknown]

NARRATIVE: CASE EVENT DATE: 20250101
